FAERS Safety Report 8069660-0 (Version None)
Quarter: 2012Q1

REPORT INFORMATION
  Report Type: 
  Country: None (occurrence: None)
  Receive Date: 20120125
  Receipt Date: 20120123
  Transmission Date: 20120608
  Serious: Yes (Other)
  Sender: FDA-Public Use
  Company Number: US-PFIZER INC-2012018602

PATIENT
  Sex: Female

DRUGS (2)
  1. ARTHROTEC [Suspect]
     Indication: ARTHRALGIA
  2. ARTHROTEC [Suspect]
     Indication: ARTHRITIS
     Dosage: UNK

REACTIONS (1)
  - COELIAC DISEASE [None]
